FAERS Safety Report 23216495 (Version 5)
Quarter: 2025Q2

REPORT INFORMATION
  Report Type: Spontaneous
  Country: CA (occurrence: None)
  Receive Date: 20231122
  Receipt Date: 20250407
  Transmission Date: 20250716
  Serious: Yes (Other)
  Sender: ORION
  Company Number: CA-PFIZER INC-202300304632

PATIENT
  Age: 60 Year
  Sex: Female

DRUGS (6)
  1. METHOTREXATE [Suspect]
     Active Substance: METHOTREXATE
     Indication: Ankylosing spondylitis
     Dosage: STRENGTH: 20MG
     Dates: start: 20220603
  2. METHOTREXATE [Suspect]
     Active Substance: METHOTREXATE
     Indication: Uveitis
  3. ABRILADA [Concomitant]
     Active Substance: ADALIMUMAB-AFZB
     Indication: Ankylosing spondylitis
     Dates: start: 20231006
  4. ABRILADA [Concomitant]
     Active Substance: ADALIMUMAB-AFZB
     Indication: Uveitis
     Dates: start: 20250328
  5. DOXYCYCLINE [Concomitant]
     Active Substance: DOXYCYCLINE
     Dates: start: 202401
  6. PREDNISONE [Concomitant]
     Active Substance: PREDNISONE

REACTIONS (10)
  - Uveitis [Unknown]
  - Drug ineffective for unapproved indication [Unknown]
  - Product use in unapproved indication [Unknown]
  - Alopecia [Not Recovered/Not Resolved]
  - Intraocular pressure increased [Unknown]
  - Nasopharyngitis [Not Recovered/Not Resolved]
  - Productive cough [Not Recovered/Not Resolved]
  - Eye disorder [Not Recovered/Not Resolved]
  - Nausea [Not Recovered/Not Resolved]
  - Hepatic enzyme abnormal [Unknown]

NARRATIVE: CASE EVENT DATE: 20230101
